FAERS Safety Report 14140942 (Version 2)
Quarter: 2017Q4

REPORT INFORMATION
  Report Type: Report from Study
  Country: US (occurrence: US)
  Receive Date: 20171030
  Receipt Date: 20171213
  Transmission Date: 20180321
  Serious: Yes (Hospitalization, Other)
  Sender: FDA-Public Use
  Company Number: US-SHIRE-US201724812

PATIENT
  Age: 66 Year
  Sex: Female

DRUGS (1)
  1. GATTEX [Suspect]
     Active Substance: TEDUGLUTIDE\WATER
     Indication: SHORT-BOWEL SYNDROME
     Dosage: 0.200 ML, UNK
     Route: 065
     Dates: start: 20170830

REACTIONS (3)
  - Renal failure [Unknown]
  - Inappropriate schedule of drug administration [Recovered/Resolved]
  - Kidney infection [Unknown]

NARRATIVE: CASE EVENT DATE: 20171007
